FAERS Safety Report 25536797 (Version 2)
Quarter: 2025Q3

REPORT INFORMATION
  Report Type: Report from Study
  Country: US (occurrence: US)
  Receive Date: 20250710
  Receipt Date: 20250820
  Transmission Date: 20251021
  Serious: Yes (Other)
  Sender: ABBVIE
  Company Number: US-ABBVIE-6118541

PATIENT
  Age: 72 Year
  Sex: Female

DRUGS (4)
  1. IMBRUVICA [Suspect]
     Active Substance: IBRUTINIB
     Indication: B-cell small lymphocytic lymphoma
     Route: 048
     Dates: start: 2019
  2. IMBRUVICA [Suspect]
     Active Substance: IBRUTINIB
     Indication: B-cell small lymphocytic lymphoma
     Dosage: MISSED FOUR WEEKS
     Route: 048
     Dates: start: 202502
  3. IMBRUVICA [Suspect]
     Active Substance: IBRUTINIB
     Indication: B-cell small lymphocytic lymphoma
     Route: 048
     Dates: start: 20210105
  4. IMBRUVICA [Suspect]
     Active Substance: IBRUTINIB
     Indication: B-cell small lymphocytic lymphoma
     Route: 048
     Dates: start: 2025

REACTIONS (19)
  - Thyroid cancer [Unknown]
  - Contusion [Unknown]
  - Eye haemorrhage [Not Recovered/Not Resolved]
  - Chronic kidney disease [Unknown]
  - Arterial disorder [Unknown]
  - Hearing aid user [Unknown]
  - Glaucoma [Unknown]
  - Abdominal pain upper [Unknown]
  - Neuropathy peripheral [Unknown]
  - Spinal disorder [Unknown]
  - Petechiae [Unknown]
  - Purpura [Unknown]
  - Shoulder fracture [Unknown]
  - Chest pain [Unknown]
  - Pain [Not Recovered/Not Resolved]
  - Epistaxis [Unknown]
  - Vocal cord disorder [Unknown]
  - Haematuria [Unknown]
  - Haematochezia [Unknown]

NARRATIVE: CASE EVENT DATE: 20220701
